FAERS Safety Report 7608231-4 (Version None)
Quarter: 2011Q3

REPORT INFORMATION
  Report Type: 
  Country: None (occurrence: None)
  Receive Date: 20110714
  Receipt Date: 20110629
  Transmission Date: 20111222
  Serious: No
  Sender: FDA-Public Use
  Company Number: US-B.I. PHARMACEUTICALS,INC./RIDGEFIELD-2011-BP-16663BP

PATIENT
  Sex: Female

DRUGS (8)
  1. PRADAXA [Suspect]
     Indication: ATRIAL FIBRILLATION
     Dosage: 300 MG
     Route: 048
     Dates: start: 20110111
  2. SINGULAIR [Concomitant]
     Indication: ASTHMA
     Dosage: 10 MG
     Route: 048
  3. ADVAIR DISKUS 100/50 [Concomitant]
     Indication: ASTHMA
     Route: 055
  4. DIGOXIN [Concomitant]
     Indication: ATRIAL FIBRILLATION
     Dosage: 0.125 MG
     Route: 048
  5. PATANOL [Concomitant]
     Indication: GLAUCOMA
     Route: 031
  6. CARTEOLOL HYDROCHLORIDE [Concomitant]
     Indication: GLAUCOMA
     Route: 031
  7. ATENOLOL [Concomitant]
     Indication: HYPERTENSION
     Dosage: 25 MG
     Route: 048
  8. FLONASE [Concomitant]
     Indication: ASTHMA
     Dosage: 50 MCG
     Route: 013

REACTIONS (5)
  - RIB FRACTURE [None]
  - HYPOPNOEA [None]
  - FATIGUE [None]
  - FALL [None]
  - DYSPNOEA [None]
